FAERS Safety Report 7461420-4 (Version None)
Quarter: 2011Q2

REPORT INFORMATION
  Report Type: 
  Country: None (occurrence: None)
  Receive Date: 20110428
  Receipt Date: 20100701
  Transmission Date: 20111010
  Serious: Yes (Life-Threatening, Hospitalization)
  Sender: FDA-Public Use
  Company Number: 2010GW000476

PATIENT
  Age: 51 Year
  Sex: Female
  Weight: 54.4316 kg

DRUGS (4)
  1. ALDARA [Suspect]
     Indication: ACTINIC KERATOSIS
     Dosage: 5 PCT;5XW;TOP ; 5 PCT;5XW;TOP
     Route: 061
     Dates: start: 20100125, end: 20100214
  2. ALDARA [Suspect]
     Indication: BASAL CELL CARCINOMA
     Dosage: 5 PCT;5XW;TOP ; 5 PCT;5XW;TOP
     Route: 061
     Dates: start: 20100125, end: 20100214
  3. ALDARA [Suspect]
     Indication: ACTINIC KERATOSIS
     Dosage: 5 PCT;5XW;TOP ; 5 PCT;5XW;TOP
     Route: 061
     Dates: start: 20091001, end: 20091019
  4. ALDARA [Suspect]
     Indication: BASAL CELL CARCINOMA
     Dosage: 5 PCT;5XW;TOP ; 5 PCT;5XW;TOP
     Route: 061
     Dates: start: 20091001, end: 20091019

REACTIONS (1)
  - DUODENAL PERFORATION [None]
